FAERS Safety Report 4518559-2 (Version None)
Quarter: 2004Q4

REPORT INFORMATION
  Report Type: 
  Country: None (occurrence: None)
  Receive Date: 20041201
  Receipt Date: 20041123
  Transmission Date: 20050328
  Serious: Yes (Hospitalization)
  Sender: FDA-Public Use
  Company Number: 235271K04USA

PATIENT
  Age: 43 Year
  Sex: Female
  Weight: 65.7716 kg

DRUGS (5)
  1. REBIF [Suspect]
     Indication: MULTIPLE SCLEROSIS
     Dosage: 44 MCG, 3 IN 1 WEEKS, SUBCUTANEOUS; SEE IMAGE
     Route: 058
     Dates: start: 20040814, end: 20040826
  2. REBIF [Suspect]
     Indication: MULTIPLE SCLEROSIS
     Dosage: 44 MCG, 3 IN 1 WEEKS, SUBCUTANEOUS; SEE IMAGE
     Route: 058
     Dates: start: 20030101
  3. HYDROCODONE [Concomitant]
  4. EFFEXOR [Suspect]
     Dosage: SEE IMAGE
     Dates: start: 20040807, end: 20040813
  5. EFFEXOR [Suspect]
     Dosage: SEE IMAGE
     Dates: start: 20040814, end: 20040826

REACTIONS (15)
  - ADVERSE DRUG REACTION [None]
  - ASTHENIA [None]
  - BLOOD CREATINE PHOSPHOKINASE INCREASED [None]
  - CIRCULATORY COLLAPSE [None]
  - COUGH [None]
  - DEHYDRATION [None]
  - DEPRESSION [None]
  - FEELING ABNORMAL [None]
  - HEART RATE DECREASED [None]
  - HYPOAESTHESIA [None]
  - MYALGIA [None]
  - NASOPHARYNGITIS [None]
  - PHARYNGOLARYNGEAL PAIN [None]
  - SINUSITIS [None]
  - VOMITING [None]
